FAERS Safety Report 23521037 (Version 1)
Quarter: 2024Q1

REPORT INFORMATION
  Report Type: Spontaneous
  Country: US (occurrence: US)
  Receive Date: 20240214
  Receipt Date: 20240214
  Transmission Date: 20240410
  Serious: No
  Sender: FDA-Public Use
  Company Number: US-AMGEN-USASP2024027441

PATIENT
  Age: 53 Year
  Sex: Male

DRUGS (1)
  1. TAVNEOS [Suspect]
     Active Substance: AVACOPAN
     Indication: Granulomatosis with polyangiitis
     Dosage: UNK  BID (TWICE DAILY)
     Route: 065
     Dates: start: 20231004

REACTIONS (2)
  - Diarrhoea [Recovering/Resolving]
  - Abdominal discomfort [Recovering/Resolving]
